FAERS Safety Report 18920769 (Version 3)
Quarter: 2022Q3

REPORT INFORMATION
  Report Type: Report from Study
  Country: US (occurrence: US)
  Receive Date: 20210222
  Receipt Date: 20220804
  Transmission Date: 20221026
  Serious: Yes (Other)
  Sender: FDA-Public Use
  Company Number: US-REGENERON PHARMACEUTICALS, INC.-2021-20931

PATIENT
  Sex: Female

DRUGS (5)
  1. PRALUENT [Suspect]
     Active Substance: ALIROCUMAB
     Indication: Hypercholesterolaemia
     Dosage: 75 MG, Q2W
     Route: 058
     Dates: start: 2014
  2. PRALUENT [Suspect]
     Active Substance: ALIROCUMAB
     Indication: Hypertriglyceridaemia
  3. EFAVIRENZ [Concomitant]
     Active Substance: EFAVIRENZ
     Indication: Osteoporosis prophylaxis
  4. POMALYST [Concomitant]
     Active Substance: POMALIDOMIDE
     Indication: Osteoporosis prophylaxis
  5. XGEVA [Concomitant]
     Active Substance: DENOSUMAB
     Indication: Osteoporosis prophylaxis

REACTIONS (6)
  - Plasma cell myeloma [Not Recovered/Not Resolved]
  - Hypothyroidism [Unknown]
  - Vascular occlusion [Unknown]
  - Fatigue [Not Recovered/Not Resolved]
  - Headache [Unknown]
  - Muscle spasms [Unknown]

NARRATIVE: CASE EVENT DATE: 20140101
